FAERS Safety Report 23647255 (Version 1)
Quarter: 2024Q1

REPORT INFORMATION
  Report Type: Spontaneous
  Country: US (occurrence: None)
  Receive Date: 20240318
  Receipt Date: 20240318
  Transmission Date: 20240409
  Serious: No
  Sender: FDA-Public Use
  Company Number: None

PATIENT
  Age: 81 Year
  Sex: Female

DRUGS (10)
  1. IYUZEH [Suspect]
     Active Substance: LATANOPROST
     Indication: Glaucoma
     Dates: start: 20240105, end: 20240315
  2. BETIMOL [Suspect]
     Active Substance: TIMOLOL
  3. TIMOLOL [Suspect]
     Active Substance: TIMOLOL
  4. LEVOTHYROXINE [Concomitant]
     Active Substance: LEVOTHYROXINE\LEVOTHYROXINE SODIUM
  5. LOSARTAN [Concomitant]
     Active Substance: LOSARTAN
  6. AMLODIPINE [Concomitant]
     Active Substance: AMLODIPINE BESYLATE
  7. OMEGA-3 ETHYL ESTER [Concomitant]
  8. DULCOLAX [Concomitant]
  9. TUMS [Concomitant]
     Active Substance: CALCIUM CARBONATE
  10. SYSTANE PF [Concomitant]
     Active Substance: POLYETHYLENE GLYCOL 400\PROPYLENE GLYCOL

REACTIONS (3)
  - Hallucination [None]
  - Dry eye [None]
  - Eye pruritus [None]

NARRATIVE: CASE EVENT DATE: 20240311
